FAERS Safety Report 8333665-2 (Version None)
Quarter: 2012Q2

REPORT INFORMATION
  Report Type: 
  Country: None (occurrence: None)
  Receive Date: 20120503
  Receipt Date: 20111017
  Transmission Date: 20120825
  Serious: Yes (Disabling)
  Sender: FDA-Public Use
  Company Number: PHHY2011PE116462

PATIENT
  Age: 2 Year
  Sex: Male

DRUGS (1)
  1. BENZETACIL [Suspect]
     Indication: PYREXIA
     Route: 030
     Dates: start: 20101001

REACTIONS (2)
  - GAIT DISTURBANCE [None]
  - INJECTION SITE NECROSIS [None]
